FAERS Safety Report 6348416-0 (Version None)
Quarter: 2009Q3

REPORT INFORMATION
  Report Type: 
  Country: None (occurrence: None)
  Receive Date: 20090911
  Receipt Date: 20090909
  Transmission Date: 20100115
  Serious: Yes (Death, Hospitalization, Other)
  Sender: FDA-Public Use
  Company Number: TR-BIOGENIDEC-2009BI027712

PATIENT
  Age: 42 Year
  Sex: Female

DRUGS (1)
  1. TYSABRI [Suspect]
     Indication: MULTIPLE SCLEROSIS
     Dates: end: 20090401

REACTIONS (6)
  - ACUTE RESPIRATORY FAILURE [None]
  - CUSHING'S SYNDROME [None]
  - METASTASES TO LIVER [None]
  - PANCREATIC NEUROENDOCRINE TUMOUR [None]
  - PNEUMOCYSTIS JIROVECI INFECTION [None]
  - SEPTIC SHOCK [None]
